FAERS Safety Report 6793515-2 (Version None)
Quarter: 2010Q2

REPORT INFORMATION
  Report Type: 
  Country: None (occurrence: None)
  Receive Date: 20100624
  Receipt Date: 20100524
  Transmission Date: 20101027
  Serious: Yes (Other)
  Sender: FDA-Public Use
  Company Number: US-MYLANLABS-2010S1007287

PATIENT
  Age: 25 Year
  Sex: Male

DRUGS (5)
  1. CLOZAPINE [Suspect]
     Indication: PSYCHOTIC DISORDER
     Route: 048
     Dates: start: 20090904, end: 20100421
  2. SEROQUEL [Concomitant]
     Route: 048
  3. TRAZODONE HYDROCHLORIDE [Concomitant]
  4. ALBUTEROL [Concomitant]
  5. HALOPERIDOL [Concomitant]
     Route: 048

REACTIONS (2)
  - GRANULOCYTOPENIA [None]
  - LEUKOPENIA [None]
